FAERS Safety Report 18745543 (Version 1)
Quarter: 2021Q1

REPORT INFORMATION
  Report Type: Spontaneous
  Country: US (occurrence: US)
  Receive Date: 20210113
  Receipt Date: 20210113
  Transmission Date: 20210419
  Serious: No
  Sender: FDA-Public Use
  Company Number: None

PATIENT
  Sex: Female

DRUGS (1)
  1. FULL SPECTRUM CBD CAPSULES [Suspect]
     Active Substance: CANNABIDIOL\HERBALS
     Indication: PAIN
     Route: 048
     Dates: start: 20210104, end: 20210104

REACTIONS (4)
  - Speech disorder [None]
  - Tremor [None]
  - Disturbance in attention [None]
  - Dysstasia [None]
